FAERS Safety Report 5546580-4 (Version None)
Quarter: 2007Q4

REPORT INFORMATION
  Report Type: 
  Country: None (occurrence: None)
  Receive Date: 20071211
  Receipt Date: 20070212
  Transmission Date: 20080405
  Serious: No
  Sender: FDA-Public Use
  Company Number: US-AMGEN-KDL211038

PATIENT
  Sex: Female

DRUGS (9)
  1. ENBREL [Suspect]
     Indication: RHEUMATOID ARTHRITIS
     Route: 058
     Dates: start: 20040126
  2. PLAQUENIL [Concomitant]
     Dates: start: 20061207, end: 20070104
  3. POTASSIUM CHLORIDE [Concomitant]
  4. TRIAMTERENE [Concomitant]
  5. XANAX [Concomitant]
  6. PREDNISONE [Concomitant]
  7. ULTRAM [Concomitant]
  8. ACTONEL [Concomitant]
  9. PREVACID [Concomitant]

REACTIONS (5)
  - ASTHENIA [None]
  - DECREASED APPETITE [None]
  - DRUG INTERACTION [None]
  - LETHARGY [None]
  - RHEUMATOID ARTHRITIS [None]
